FAERS Safety Report 13622333 (Version 1)
Quarter: 2017Q2

REPORT INFORMATION
  Report Type: Spontaneous
  Country: US (occurrence: US)
  Receive Date: 20170607
  Receipt Date: 20170607
  Transmission Date: 20170830
  Serious: No
  Sender: FDA-Public Use
  Company Number: US-ROCHE-1849455

PATIENT
  Sex: Female
  Weight: 86.08 kg

DRUGS (8)
  1. NORTRIPTYLINE HCL [Concomitant]
     Active Substance: NORTRIPTYLINE HYDROCHLORIDE
     Route: 048
     Dates: end: 20160819
  2. KLONOPIN [Suspect]
     Active Substance: CLONAZEPAM
     Indication: PRODUCT USED FOR UNKNOWN INDICATION
     Route: 065
  3. NAPROSYN [Concomitant]
     Active Substance: NAPROXEN
     Dosage: TAKE 1 TABLET AT NIGHT AS NEEDED
     Route: 048
     Dates: start: 20160715
  4. LYRICA [Concomitant]
     Active Substance: PREGABALIN
     Indication: ARTHRALGIA
     Route: 048
     Dates: start: 20160720
  5. CYCLOBENZAPRINE HCL [Concomitant]
     Active Substance: CYCLOBENZAPRINE HYDROCHLORIDE
     Indication: ARTHRALGIA
     Dosage: TAKE 1 TABLET EVERY 8 HOURS AS NEEDED.
     Route: 048
     Dates: start: 20160715
  6. SUMATRIPTAN SUCCINATE. [Concomitant]
     Active Substance: SUMATRIPTAN SUCCINATE
     Indication: HEADACHE
     Dosage: TAKE 2 TABLETS BY MOUTH, IF NO RESPONSE IN 2 HRS, TAKE ANOTHER 2 TABLETS, DO NOT EXCEED 100 MG EACH
     Route: 048
     Dates: start: 20160912
  7. LYRICA [Concomitant]
     Active Substance: PREGABALIN
     Indication: BACK PAIN
  8. CLONIDINE HCL [Concomitant]
     Active Substance: CLONIDINE HYDROCHLORIDE
     Route: 048
     Dates: start: 20160808

REACTIONS (1)
  - Drug hypersensitivity [Unknown]
